FAERS Safety Report 5187843-4 (Version None)
Quarter: 2006Q4

REPORT INFORMATION
  Report Type: 
  Country: None (occurrence: None)
  Receive Date: 20061221
  Receipt Date: 20060823
  Transmission Date: 20070319
  Serious: No
  Sender: FDA-Public Use
  Company Number: US-GLAXOSMITHKLINE-A0617825A

PATIENT
  Age: 77 Year
  Sex: Female

DRUGS (10)
  1. AVANDARYL [Suspect]
     Dosage: 1TAB PER DAY
     Route: 048
     Dates: start: 20060701
  2. MECLIZINE [Concomitant]
  3. TIAZAC [Concomitant]
  4. ASPIRIN [Concomitant]
  5. ALPRAZOLAM [Concomitant]
  6. PRAVASTATIN [Concomitant]
  7. CILOSTAZOL [Concomitant]
  8. PROTONIX [Concomitant]
  9. TYLENOL [Concomitant]
  10. ULTRACET [Concomitant]

REACTIONS (8)
  - DIZZINESS [None]
  - DRY SKIN [None]
  - FALL [None]
  - HYPOTONIA [None]
  - MUSCULAR WEAKNESS [None]
  - PAIN IN EXTREMITY [None]
  - SKIN FISSURES [None]
  - SWELLING FACE [None]
